FAERS Safety Report 12675669 (Version 2)
Quarter: 2018Q2

REPORT INFORMATION
  Report Type: Spontaneous
  Country: US (occurrence: US)
  Receive Date: 20160823
  Receipt Date: 20180503
  Transmission Date: 20180711
  Serious: No
  Sender: FDA-Public Use
  Company Number: US-JAZZ-2016-US-006395

PATIENT
  Sex: Male

DRUGS (24)
  1. XYREM [Suspect]
     Active Substance: SODIUM OXYBATE
     Indication: NARCOLEPSY
     Dosage: 2.25 G, BID
     Route: 048
     Dates: start: 201404, end: 201405
  2. XYREM [Suspect]
     Active Substance: SODIUM OXYBATE
     Dosage: 4.5 G, BID
     Route: 048
     Dates: start: 201512
  3. ASMANEX [Concomitant]
     Active Substance: MOMETASONE FUROATE
  4. LISINOPRIL AND HYDROCHLOROTHIAZIDE [Concomitant]
     Active Substance: HYDROCHLOROTHIAZIDE\LISINOPRIL
  5. XYREM [Suspect]
     Active Substance: SODIUM OXYBATE
     Indication: CATAPLEXY
     Dosage: DOSE ADJUSTMENTS
     Route: 048
  6. XYREM [Suspect]
     Active Substance: SODIUM OXYBATE
     Dosage: 3.75 G, BID
     Route: 048
  7. RANITIDINE. [Concomitant]
     Active Substance: RANITIDINE
  8. ASTELIN [Concomitant]
     Active Substance: AZELASTINE HYDROCHLORIDE
  9. CLARINEX [Concomitant]
     Active Substance: DESLORATADINE
  10. HYDROCHLOROTHIAZIDE. [Concomitant]
     Active Substance: HYDROCHLOROTHIAZIDE
  11. LORATADINE. [Concomitant]
     Active Substance: LORATADINE
  12. ALLEGRA ALLERGY [Concomitant]
     Active Substance: FEXOFENADINE HYDROCHLORIDE
  13. CEFDINIR. [Concomitant]
     Active Substance: CEFDINIR
  14. MULTIVITAMINS [Concomitant]
     Active Substance: VITAMINS
  15. ASMANEX [Concomitant]
     Active Substance: MOMETASONE FUROATE
  16. SINGULAIR [Concomitant]
     Active Substance: MONTELUKAST SODIUM
  17. ALLERGY [Concomitant]
     Active Substance: UNSPECIFIED INGREDIENT
  18. NASONEX [Concomitant]
     Active Substance: MOMETASONE FUROATE
  19. OMEGA 3 FISH OIL [Concomitant]
     Active Substance: FISH OIL\OMEGA-3 FATTY ACIDS
  20. PROAIR HFA [Concomitant]
     Active Substance: ALBUTEROL SULFATE
  21. LOVASTATIN. [Concomitant]
     Active Substance: LOVASTATIN
  22. ASCORBIC ACID. [Concomitant]
     Active Substance: ASCORBIC ACID
  23. CORAL CALCIUM [Concomitant]
     Active Substance: DIETARY SUPPLEMENT
  24. FISH OIL [Concomitant]
     Active Substance: FISH OIL

REACTIONS (1)
  - Oedema peripheral [Recovering/Resolving]
